FAERS Safety Report 10043549 (Version 1)
Quarter: 2014Q1

REPORT INFORMATION
  Report Type: Spontaneous
  Country: US (occurrence: US)
  Receive Date: 20140328
  Receipt Date: 20140328
  Transmission Date: 20141002
  Serious: Yes (Other)
  Sender: FDA-Public Use
  Company Number: US-JNJFOC-20140310832

PATIENT
  Age: 56 Year
  Sex: Male
  Weight: 92.99 kg

DRUGS (3)
  1. DURAGESIC [Suspect]
     Indication: ARTHROPATHY
     Route: 062
  2. FENTANYL [Suspect]
     Indication: ARTHROPATHY
     Route: 062
  3. MYLAN FENTANYL PATCH [Suspect]
     Indication: PRODUCT USED FOR UNKNOWN INDICATION
     Route: 062

REACTIONS (4)
  - Sternal fracture [Unknown]
  - Pain [Not Recovered/Not Resolved]
  - Breakthrough pain [Not Recovered/Not Resolved]
  - Drug dose omission [Unknown]
